FAERS Safety Report 6082929-4 (Version None)
Quarter: 2009Q1

REPORT INFORMATION
  Report Type: 
  Country: None (occurrence: None)
  Receive Date: 20090204
  Receipt Date: 20080320
  Transmission Date: 20090719
  Serious: Yes (Hospitalization)
  Sender: FDA-Public Use
  Company Number: 272554

PATIENT
  Age: 64 Year
  Sex: Male

DRUGS (11)
  1. NOVOLOG [Suspect]
     Indication: DIABETES MELLITUS
     Dosage: SLIDING SCALE, SUBCUTANEOUS
     Route: 058
     Dates: start: 20060101
  2. LANTUS [Suspect]
     Indication: DIABETES MELLITUS
     Dosage: 34 IU, QD, SUBCUTANEOUS
     Route: 058
     Dates: start: 20060101
  3. ASPIRIN [Concomitant]
  4. METFORMIN HCL [Concomitant]
  5. XANAX [Concomitant]
  6. DILANTIN /00017401/ (PHENYTOIN) [Concomitant]
  7. CAPOTEN [Concomitant]
  8. HYTRIN [Concomitant]
  9. LIPITOR [Concomitant]
  10. RISPERDAL [Concomitant]
  11. PROSCAR [Concomitant]

REACTIONS (2)
  - BLOOD GLUCOSE DECREASED [None]
  - WRONG DRUG ADMINISTERED [None]
